FAERS Safety Report 16422807 (Version 2)
Quarter: 2019Q3

REPORT INFORMATION
  Report Type: Spontaneous
  Country: US (occurrence: US)
  Receive Date: 20190612
  Receipt Date: 20190822
  Transmission Date: 20191004
  Serious: No
  Sender: FDA-Public Use
  Company Number: US-SA-2019SA157832

PATIENT
  Age: 41 Year
  Sex: Female

DRUGS (2)
  1. PRALUENT [Suspect]
     Active Substance: ALIROCUMAB
     Indication: HYPERCHOLESTEROLAEMIA
     Dosage: 75 MG;, EVERY 30 DAYS
     Dates: start: 201906
  2. PRALUENT [Suspect]
     Active Substance: ALIROCUMAB
     Indication: HYPERLIPIDAEMIA
     Dosage: 150 MG, QOW
     Dates: start: 20181201

REACTIONS (7)
  - Eye pruritus [Unknown]
  - Nasal congestion [Unknown]
  - Diarrhoea [Recovered/Resolved]
  - Feeling abnormal [Unknown]
  - Blood immunoglobulin E increased [Unknown]
  - Off label use [Unknown]
  - Food allergy [Unknown]

NARRATIVE: CASE EVENT DATE: 2019
